FAERS Safety Report 5151398-0 (Version None)
Quarter: 2006Q4

REPORT INFORMATION
  Report Type: 
  Country: None (occurrence: None)
  Receive Date: 20061110
  Receipt Date: 20061110
  Transmission Date: 20070319
  Serious: Yes (Hospitalization)
  Sender: FDA-Public Use
  Company Number: None

PATIENT
  Sex: Male
  Weight: 92.0802 kg

DRUGS (8)
  1. GEMCITABINE [Suspect]
     Indication: NON-SMALL CELL LUNG CANCER STAGE IV
     Dosage: 2520 MG DAY 1+ 8 IV
     Route: 042
     Dates: start: 20061017
  2. GEMCITABINE [Suspect]
     Indication: NON-SMALL CELL LUNG CANCER STAGE IV
     Dosage: 2520 MG DAY 1+ 8 IV
     Route: 042
     Dates: start: 20061024
  3. ACETAMINOPHEN [Concomitant]
  4. RANITIDINE HCL [Concomitant]
  5. SIMVASTATIN [Concomitant]
  6. EPOETIN ALFA, RECOMBINANT [Concomitant]
  7. GLYBURIDE [Concomitant]
  8. LISINOPRIL [Concomitant]

REACTIONS (1)
  - ACUTE MYOCARDIAL INFARCTION [None]
